FAERS Safety Report 16917228 (Version 2)
Quarter: 2019Q4

REPORT INFORMATION
  Report Type: Spontaneous
  Country: FR (occurrence: FR)
  Receive Date: 20191015
  Receipt Date: 20191225
  Transmission Date: 20200122
  Serious: Yes (Hospitalization)
  Sender: FDA-Public Use
  Company Number: FR-TEVA-2019-FR-1120015

PATIENT
  Age: 66 Year
  Sex: Male
  Weight: 83.8 kg

DRUGS (5)
  1. PACLITAXEL. [Suspect]
     Active Substance: PACLITAXEL
     Indication: OESOPHAGEAL ADENOCARCINOMA
     Dosage: 168 MG 1 TOTAL
     Route: 041
     Dates: start: 20190308, end: 20190308
  2. SETOFILM 8 MG, FILM ORODISPERSIBLE [Concomitant]
     Active Substance: ONDANSETRON
     Indication: PROPHYLAXIS
     Dosage: UNNOWN
     Route: 048
     Dates: start: 20190308
  3. CARBOPLATIN. [Interacting]
     Active Substance: CARBOPLATIN
     Indication: OESOPHAGEAL ADENOCARCINOMA
     Dosage: 230 MG 1 TOTAL
     Route: 041
     Dates: start: 20190308, end: 20190308
  4. RANITIDINE MYLAN 150 MG, COMPRIM? PELLICUL? [Concomitant]
     Indication: PROPHYLAXIS
     Dosage: UNKNOWN
     Route: 048
     Dates: start: 20190308, end: 20190308
  5. LEVOCETIRIZINE ARROW 5 MG, COMPRIM? PELLICUL? [Concomitant]
     Indication: PROPHYLAXIS
     Dosage: UNKNOWN
     Route: 048
     Dates: start: 20190308, end: 20190308

REACTIONS (5)
  - Abscess limb [Recovered/Resolved]
  - Escherichia sepsis [Recovered/Resolved]
  - Aplasia [Recovered/Resolved]
  - Urinary tract infection [Recovered/Resolved]
  - Drug interaction [Recovered/Resolved]

NARRATIVE: CASE EVENT DATE: 20190315
